FAERS Safety Report 26136043 (Version 1)
Quarter: 2025Q4

REPORT INFORMATION
  Report Type: Spontaneous
  Country: US (occurrence: US)
  Receive Date: 20251209
  Receipt Date: 20251209
  Transmission Date: 20260117
  Serious: Yes (Other)
  Sender: ORGANON
  Company Number: US-ORGANON-O2512USA000483

PATIENT
  Age: 33 Year
  Sex: Female

DRUGS (4)
  1. TOFIDENCE [Suspect]
     Active Substance: TOCILIZUMAB-BAVI
     Indication: Rheumatoid arthritis
     Dosage: FIRST INFUSION
  2. TOFIDENCE [Suspect]
     Active Substance: TOCILIZUMAB-BAVI
     Dosage: WITHIN 2 DAYS OF THE SECOND INFUSION
  3. PREDNISONE [Concomitant]
     Active Substance: PREDNISONE
     Dosage: 10 MG DAILY
  4. PREDNISONE [Concomitant]
     Active Substance: PREDNISONE
     Dosage: 20 MG DAILY

REACTIONS (1)
  - Cutaneous vasculitis [Recovered/Resolved]
